FAERS Safety Report 6677804-8 (Version None)
Quarter: 2010Q2

REPORT INFORMATION
  Report Type: 
  Country: None (occurrence: None)
  Receive Date: 20100412
  Receipt Date: 20100311
  Transmission Date: 20101027
  Serious: Yes (Hospitalization)
  Sender: FDA-Public Use
  Company Number: US-ALEXION-A201000239

PATIENT
  Sex: Male

DRUGS (5)
  1. SOLIRIS [Suspect]
     Indication: PAROXYSMAL NOCTURNAL HAEMOGLOBINURIA
     Dosage: 600 MG, UNK
     Route: 042
     Dates: start: 20100302
  2. COUMADIN [Suspect]
     Dosage: UNK
     Route: 048
     Dates: end: 20100301
  3. FLOMAX [Concomitant]
     Dosage: UNK
     Route: 048
  4. XALATAN [Concomitant]
     Dosage: UNK
  5. TIMOPTIC [Concomitant]
     Dosage: UNK

REACTIONS (1)
  - GASTROINTESTINAL HAEMORRHAGE [None]
